FAERS Safety Report 6053326-2 (Version None)
Quarter: 2009Q1

REPORT INFORMATION
  Report Type: 
  Country: None (occurrence: None)
  Receive Date: 20090127
  Receipt Date: 20090122
  Transmission Date: 20090719
  Serious: Yes (Other)
  Sender: FDA-Public Use
  Company Number: B0548521A

PATIENT
  Age: 45 Year
  Sex: Female
  Weight: 54 kg

DRUGS (3)
  1. AVAMYS [Suspect]
     Dosage: 110MCG PER DAY
     Route: 045
  2. FLIXONASE AQUA [Suspect]
     Indication: DRUG USE FOR UNKNOWN INDICATION
     Route: 065
  3. NASONEX [Concomitant]

REACTIONS (1)
  - VISION BLURRED [None]
